FAERS Safety Report 25506789 (Version 1)
Quarter: 2025Q3

REPORT INFORMATION
  Report Type: Spontaneous
  Country: US (occurrence: US)
  Receive Date: 20250702
  Receipt Date: 20250702
  Transmission Date: 20251021
  Serious: No
  Sender: RADIUS PHARM
  Company Number: US-RADIUS HEALTH INC.-2025US000994

PATIENT
  Age: 67 Year
  Sex: Female
  Weight: 103.99 kg

DRUGS (1)
  1. TYMLOS [Suspect]
     Active Substance: ABALOPARATIDE
     Indication: Osteoporosis postmenopausal
     Route: 058

REACTIONS (6)
  - Vomiting [Unknown]
  - Diarrhoea [Unknown]
  - Fear of falling [Unknown]
  - Dizziness [Unknown]
  - Illness [Unknown]
  - Mobility decreased [Unknown]

NARRATIVE: CASE EVENT DATE: 20240203
